FAERS Safety Report 10518768 (Version 1)
Quarter: 2014Q4

REPORT INFORMATION
  Report Type: Spontaneous
  Country: US (occurrence: None)
  Receive Date: 20141014
  Receipt Date: 20141014
  Transmission Date: 20150528
  Serious: No
  Sender: FDA-Public Use
  Company Number: None

PATIENT
  Age: 44 Year

DRUGS (2)
  1. CLOBETASOL PROPIONATE. [Suspect]
     Active Substance: CLOBETASOL PROPIONATE
  2. KETOCONAZOLE 2 % SHAMPOO [Concomitant]

REACTIONS (4)
  - Lacrimation increased [None]
  - Rhinorrhoea [None]
  - Eye irritation [None]
  - Rash [None]

NARRATIVE: CASE EVENT DATE: 20140929
